FAERS Safety Report 7602842-8 (Version None)
Quarter: 2011Q3

REPORT INFORMATION
  Report Type: 
  Country: None (occurrence: None)
  Receive Date: 20110712
  Receipt Date: 20110701
  Transmission Date: 20111222
  Serious: Yes (Other)
  Sender: FDA-Public Use
  Company Number: GB-JNJFOC-20110505709

PATIENT
  Age: 51 Year
  Sex: Female
  Weight: 88 kg

DRUGS (4)
  1. AZULFIDINE [Concomitant]
     Dates: start: 20071122
  2. REMICADE [Suspect]
     Indication: RHEUMATOID ARTHRITIS
     Route: 042
     Dates: start: 20030215, end: 20040122
  3. HYDROXYCHLOROQUINE SULFATE [Concomitant]
     Dates: start: 20040615
  4. METHOTREXATE [Concomitant]
     Dates: start: 20030901

REACTIONS (1)
  - CERVIX CARCINOMA STAGE 0 [None]
